FAERS Safety Report 5806665-1 (Version None)
Quarter: 2008Q3

REPORT INFORMATION
  Report Type: 
  Country: None (occurrence: None)
  Receive Date: 20080710
  Receipt Date: 20080708
  Transmission Date: 20090109
  Serious: Yes (Hospitalization)
  Sender: FDA-Public Use
  Company Number: IT-MERCK-0807ITA00017

PATIENT
  Age: 30 Year
  Sex: Male

DRUGS (2)
  1. SINGULAIR [Suspect]
     Indication: ASTHMA
     Route: 048
     Dates: start: 20071023, end: 20080117
  2. FLUTICASONE PROPIONATE AND SALMETEROL XINAFOATE [Concomitant]
     Route: 065

REACTIONS (5)
  - ARTHRALGIA [None]
  - ASTHENIA [None]
  - MONONEUROPATHY [None]
  - PYREXIA [None]
  - VASCULITIS NECROTISING [None]
